FAERS Safety Report 10337562 (Version 3)
Quarter: 2015Q1

REPORT INFORMATION
  Report Type: Spontaneous
  Country: US (occurrence: US)
  Receive Date: 20140724
  Receipt Date: 20150119
  Transmission Date: 20150720
  Serious: Yes (Hospitalization)
  Sender: FDA-Public Use
  Company Number: US-UNITED THERAPEUTICS-UTC-047315

PATIENT
  Age: 67 Year
  Sex: Male
  Weight: 90.71 kg

DRUGS (4)
  1. WARFARIN [Concomitant]
     Active Substance: WARFARIN
  2. REMODULIN [Suspect]
     Active Substance: TREPROSTINIL
     Dosage: 0.05 ?G/KG, CONTINUING
     Route: 058
     Dates: start: 20120929
  3. ADCIRCA [Concomitant]
     Active Substance: TADALAFIL
  4. MACITENTAN [Concomitant]
     Active Substance: MACITENTAN

REACTIONS (1)
  - Pulmonary arterial hypertension [Unknown]

NARRATIVE: CASE EVENT DATE: 20140218
